FAERS Safety Report 9277153 (Version 3)
Quarter: 2013Q4

REPORT INFORMATION
  Report Type: Report from Study
  Country: US (occurrence: US)
  Receive Date: 20130508
  Receipt Date: 20131127
  Transmission Date: 20140711
  Serious: Yes (Hospitalization, Other)
  Sender: FDA-Public Use
  Company Number: US-US-EMD SERONO, INC.-7208684

PATIENT
  Sex: Male
  Weight: 152 kg

DRUGS (2)
  1. REBIF [Suspect]
     Indication: MULTIPLE SCLEROSIS
     Route: 058
     Dates: start: 20080820, end: 201301
  2. REBIF [Suspect]
     Route: 058
     Dates: start: 201303

REACTIONS (4)
  - Cellulitis [Recovered/Resolved]
  - Venous insufficiency [Recovered/Resolved]
  - Candida infection [Recovered/Resolved]
  - Injection site bruising [Not Recovered/Not Resolved]
